FAERS Safety Report 11071791 (Version 1)
Quarter: 2015Q2

REPORT INFORMATION
  Report Type: Spontaneous
  Country: US (occurrence: None)
  Receive Date: 20150427
  Receipt Date: 20150427
  Transmission Date: 20150821
  Serious: Yes (Hospitalization, Disabling, Other)
  Sender: FDA-Public Use
  Company Number: None

PATIENT
  Age: 27 Year
  Sex: Female
  Weight: 47.17 kg

DRUGS (5)
  1. TRAMADOL [Concomitant]
     Active Substance: TRAMADOL
  2. TYLENOL [Concomitant]
     Active Substance: ACETAMINOPHEN
  3. KENALOG [Suspect]
     Active Substance: TRIAMCINOLONE ACETONIDE
     Indication: SINUSITIS
     Dosage: 1 SHOT ONCE DAILY INTO THE MUSCLE
     Route: 030
     Dates: start: 20141101, end: 20141101
  4. LINZESS [Concomitant]
     Active Substance: LINACLOTIDE
  5. IBUPROFEN. [Concomitant]
     Active Substance: IBUPROFEN

REACTIONS (7)
  - Chest pain [None]
  - Fatigue [None]
  - Injection site pain [None]
  - Injection site pruritus [None]
  - Nausea [None]
  - Skin atrophy [None]
  - Abdominal pain upper [None]

NARRATIVE: CASE EVENT DATE: 20141101
